FAERS Safety Report 9572621 (Version 2)
Quarter: 2013Q4

REPORT INFORMATION
  Report Type: Spontaneous
  Country: LB (occurrence: None)
  Receive Date: 20130927
  Receipt Date: 20131220
  Transmission Date: 20140711
  Serious: Yes (Disabling, Other)
  Sender: FDA-Public Use
  Company Number: AXC-2013-000487

PATIENT
  Age: 37 Year
  Sex: Female

DRUGS (4)
  1. PYLERA [Suspect]
     Indication: GASTRIC ULCER
     Dosage: UNK, ORAL
     Route: 048
     Dates: start: 201211, end: 2012
  2. METHOTREXATE (METHOTREXATE) [Concomitant]
  3. FOLIC ACID (FOLIC ACID) [Concomitant]
  4. OMEPRAZOLE (OMEPRAZOLE) [Concomitant]

REACTIONS (2)
  - Rheumatoid arthritis [None]
  - Condition aggravated [None]
